FAERS Safety Report 11330044 (Version 3)
Quarter: 2015Q3

REPORT INFORMATION
  Report Type: Spontaneous
  Country: FR (occurrence: FR)
  Receive Date: 20150803
  Receipt Date: 20150810
  Transmission Date: 20151125
  Serious: Yes (Death)
  Sender: FDA-Public Use
  Company Number: FR-PFIZER INC-2015253383

PATIENT
  Age: 87 Year
  Sex: Female

DRUGS (3)
  1. CORDARONE [Suspect]
     Active Substance: AMIODARONE HYDROCHLORIDE
     Indication: ACUTE PULMONARY OEDEMA
     Dosage: 1 DF, DAILY
     Route: 048
     Dates: end: 201505
  2. CORDARONE [Suspect]
     Active Substance: AMIODARONE HYDROCHLORIDE
     Dosage: UNK
     Route: 042
     Dates: start: 201506, end: 201506
  3. SOVALDI [Suspect]
     Active Substance: SOFOSBUVIR
     Dosage: 1 DF, DAILY
     Route: 048
     Dates: start: 20150413, end: 201505

REACTIONS (1)
  - Death [Fatal]

NARRATIVE: CASE EVENT DATE: 201506
